FAERS Safety Report 24705779 (Version 1)
Quarter: 2024Q4

REPORT INFORMATION
  Report Type: Spontaneous
  Country: JP (occurrence: JP)
  Receive Date: 20241206
  Receipt Date: 20241206
  Transmission Date: 20250115
  Serious: Yes (Death)
  Sender: PFIZER
  Company Number: JP-PFIZER INC-202400317195

PATIENT

DRUGS (3)
  1. AZITHROMYCIN [Suspect]
     Active Substance: AZITHROMYCIN
     Indication: Infection prophylaxis
     Dosage: 1 MG
     Route: 064
  2. AMPICILLIN [Suspect]
     Active Substance: AMPICILLIN
     Indication: Infection prophylaxis
     Dosage: 2 G INFUSION EVERY 6 HOURS
     Route: 064
  3. AMOXICILLIN [Suspect]
     Active Substance: AMOXICILLIN
     Indication: Infection prophylaxis
     Dosage: 500 MG EVERY 8 HOURS
     Route: 064

REACTIONS (3)
  - Maternal exposure during pregnancy [Fatal]
  - Drug ineffective for unapproved indication [Fatal]
  - Off label use [Unknown]
